FAERS Safety Report 25984133 (Version 3)
Quarter: 2025Q4

REPORT INFORMATION
  Report Type: Spontaneous
  Country: AU (occurrence: AU)
  Receive Date: 20251031
  Receipt Date: 20251202
  Transmission Date: 20260118
  Serious: Yes (Other)
  Sender: SANDOZ
  Company Number: None

PATIENT
  Age: 55 Year
  Sex: Male

DRUGS (8)
  1. MYCOPHENOLATE MOFETIL [Suspect]
     Active Substance: MYCOPHENOLATE MOFETIL
     Indication: Immunosuppressant drug therapy
     Dosage: 1500 MG, INTERVAL: 2 DAY
     Route: 065
  2. PREDNISOLONE [Suspect]
     Active Substance: PREDNISOLONE
     Indication: Immunosuppressant drug therapy
     Dosage: 1 MILLIGRAM PER KILOGRAM, QD
     Route: 065
  3. PREDNISOLONE [Suspect]
     Active Substance: PREDNISOLONE
     Dosage: 20 MG
     Route: 065
  4. PREDNISOLONE [Suspect]
     Active Substance: PREDNISOLONE
     Dosage: 5 MG/KG, QD
     Route: 065
  5. FLUCLOXACILLIN SODIUM [Interacting]
     Active Substance: FLUCLOXACILLIN SODIUM
     Indication: Staphylococcal bacteraemia
     Dosage: 2 G, INTERVAL: 4 HOUR
     Route: 042
  6. FLUCLOXACILLIN SODIUM [Interacting]
     Active Substance: FLUCLOXACILLIN SODIUM
     Indication: Wound infection
  7. TACROLIMUS [Interacting]
     Active Substance: TACROLIMUS
     Indication: Immunosuppressant drug therapy
     Dosage: 4 MG
     Route: 065
  8. TACROLIMUS [Interacting]
     Active Substance: TACROLIMUS
     Dosage: 8 MG, INTERVAL: 2 DAY
     Route: 065

REACTIONS (5)
  - Immunosuppressant drug level decreased [Recovered/Resolved]
  - Heart transplant rejection [Unknown]
  - Staphylococcal bacteraemia [Unknown]
  - Wound infection [Unknown]
  - Drug interaction [Unknown]
